FAERS Safety Report 6602723-2 (Version None)
Quarter: 2010Q1

REPORT INFORMATION
  Report Type: 
  Country: None (occurrence: None)
  Receive Date: 20100218
  Receipt Date: 20100205
  Transmission Date: 20100710
  Serious: Yes (Death, Hospitalization, Other)
  Sender: FDA-Public Use
  Company Number: 2010AL000924

PATIENT
  Age: 65 Year
  Sex: Male

DRUGS (10)
  1. NAPROXEN [Suspect]
     Indication: ARTHRITIS
     Dosage: 20 MG;QD
     Dates: start: 20071117
  2. NAPROXEN [Suspect]
     Indication: GOUT
     Dosage: 20 MG;QD
     Dates: start: 20071117
  3. GEMZAR [Concomitant]
  4. COMBIVENT [Concomitant]
  5. ACETAMINOPHEN AND CODEINE PHOSPHATE [Concomitant]
  6. SERETIDE [Concomitant]
  7. GABAPENTIN [Concomitant]
  8. OMEPRAZOLE [Concomitant]
  9. CARBOPLATIN [Concomitant]
  10. PACLITAXEL [Concomitant]

REACTIONS (31)
  - ALOPECIA [None]
  - AORTIC ARTERIOSCLEROSIS [None]
  - ARTERIOSCLEROSIS CORONARY ARTERY [None]
  - BONE MARROW FAILURE [None]
  - CELLULITIS [None]
  - CONTUSION [None]
  - CYSTITIS HAEMORRHAGIC [None]
  - GENERAL PHYSICAL HEALTH DETERIORATION [None]
  - HYPERHIDROSIS [None]
  - KIDNEY FIBROSIS [None]
  - LEFT VENTRICULAR HYPERTROPHY [None]
  - LIP SWELLING [None]
  - LIVIDITY [None]
  - METASTASES TO KIDNEY [None]
  - MUCOSAL INFLAMMATION [None]
  - MULTI-ORGAN FAILURE [None]
  - NEUTROPENIC SEPSIS [None]
  - PANCYTOPENIA [None]
  - PERICARDITIS [None]
  - PETECHIAE [None]
  - PULMONARY FIBROSIS [None]
  - PULMONARY NECROSIS [None]
  - PULMONARY OEDEMA [None]
  - RASH ERYTHEMATOUS [None]
  - RASH PUSTULAR [None]
  - RENAL DISORDER [None]
  - RENAL FAILURE ACUTE [None]
  - RENAL NECROSIS [None]
  - RENAL TUBULAR NECROSIS [None]
  - RIB FRACTURE [None]
  - VASCULAR OCCLUSION [None]
